FAERS Safety Report 13935118 (Version 1)
Quarter: 2017Q3

REPORT INFORMATION
  Report Type: Spontaneous
  Country: US (occurrence: None)
  Receive Date: 20170901
  Receipt Date: 20170901
  Transmission Date: 20171127
  Serious: Yes (Hospitalization)
  Sender: FDA-Public Use
  Company Number: None

PATIENT
  Age: 55 Year
  Sex: Male
  Weight: 108 kg

DRUGS (1)
  1. TROSPIUM [Suspect]
     Active Substance: TROSPIUM
     Indication: HYPERTONIC BLADDER
     Route: 048
     Dates: start: 20170717, end: 20170824

REACTIONS (4)
  - Therapy cessation [None]
  - Fall [None]
  - Dizziness [None]
  - Vision blurred [None]

NARRATIVE: CASE EVENT DATE: 20170824
